FAERS Safety Report 19501689 (Version 1)
Quarter: 2021Q3

REPORT INFORMATION
  Report Type: Spontaneous
  Country: US (occurrence: US)
  Receive Date: 20210707
  Receipt Date: 20210707
  Transmission Date: 20211014
  Serious: No
  Sender: FDA-Public Use
  Company Number: None

PATIENT
  Age: 61 Year
  Sex: Female

DRUGS (4)
  1. RASUVO [Suspect]
     Active Substance: METHOTREXATE SODIUM
     Indication: RHEUMATOID ARTHRITIS
     Dosage: ON THE SAME DAY EACH WEEK AS DIRECTED
     Route: 058
     Dates: start: 202006
  2. RASUVO [Suspect]
     Active Substance: METHOTREXATE SODIUM
     Indication: CHRONIC OBSTRUCTIVE PULMONARY DISEASE
  3. HUMIRA [Suspect]
     Active Substance: ADALIMUMAB
     Indication: CHRONIC OBSTRUCTIVE PULMONARY DISEASE
  4. HUMIRA [Suspect]
     Active Substance: ADALIMUMAB
     Indication: RHEUMATOID ARTHRITIS
     Dosage: IN THE ABDOMEN OR THIGH (ROTATINING SITES) AS DIRECTED
     Route: 058
     Dates: start: 202101

REACTIONS (1)
  - Nasopharyngitis [None]
